FAERS Safety Report 22055678 (Version 1)
Quarter: 2023Q1

REPORT INFORMATION
  Report Type: Spontaneous
  Country: PL (occurrence: PL)
  Receive Date: 20230302
  Receipt Date: 20230302
  Transmission Date: 20230418
  Serious: Yes (Death, Other)
  Sender: FDA-Public Use
  Company Number: PL-SUN PHARMACEUTICAL INDUSTRIES LTD-2023RR-377917

PATIENT
  Age: 3 Year
  Sex: Male

DRUGS (13)
  1. BORTEZOMIB [Suspect]
     Active Substance: BORTEZOMIB
     Indication: T-cell lymphoma
     Dosage: 40 MILLIGRAM, UNK
     Route: 065
  2. BORTEZOMIB [Suspect]
     Active Substance: BORTEZOMIB
     Dosage: 30 MILLIGRAM, QD
     Route: 065
  3. BORTEZOMIB [Suspect]
     Active Substance: BORTEZOMIB
     Dosage: 1.3 MILLIGRAM/SQ. METER, DAILY
     Route: 065
  4. DAUNORUBICIN [Concomitant]
     Active Substance: DAUNORUBICIN
     Indication: T-cell lymphoma
     Dosage: 30 MILLIGRAM/SQ. METER, DAILY
     Route: 065
  5. PEG/L-ASPARAGINASE [Concomitant]
     Active Substance: PEGASPARGASE
     Indication: T-cell lymphoma
     Dosage: 100 U/M^2
     Route: 065
  6. MERCAPTOPURINE [Concomitant]
     Active Substance: MERCAPTOPURINE
     Indication: Lymphadenopathy
     Dosage: 60 MILLIGRAM/SQ. METER, DAILY
     Route: 065
  7. PREDNISOLONE [Concomitant]
     Active Substance: PREDNISOLONE
     Indication: T-cell lymphoma
     Dosage: 60 MILLIGRAM/SQ. METER, DAILY
     Route: 065
  8. DEXAMETHASONE [Concomitant]
     Active Substance: DEXAMETHASONE
     Indication: T-cell lymphoma
     Dosage: 20 MILLIGRAM/SQ. METER, DAILY
     Route: 065
  9. VINCRISTINE [Concomitant]
     Active Substance: VINCRISTINE
     Indication: T-cell lymphoma
     Dosage: 1.5 MILLIGRAM/SQ. METER, UNK
     Route: 065
  10. CYTARABINE [Concomitant]
     Active Substance: CYTARABINE
     Indication: T-cell lymphoma
     Dosage: 25 MILLIGRAM/SQ. METER, DAILY
     Route: 065
  11. CYTARABINE [Concomitant]
     Active Substance: CYTARABINE
     Dosage: 50 MILLIGRAM/SQ. METER, DAILY
     Route: 065
  12. MITOXANTRONE [Concomitant]
     Active Substance: MITOXANTRONE HYDROCHLORIDE
     Indication: T-cell lymphoma
     Dosage: 10 MILLIGRAM/SQ. METER, UNK
     Route: 065
  13. CYCLOPHOSPHAMIDE [Concomitant]
     Active Substance: CYCLOPHOSPHAMIDE
     Indication: T-cell lymphoma
     Dosage: 200 MILLIGRAM/SQ. METER, DAILY
     Route: 065

REACTIONS (5)
  - Disease progression [Fatal]
  - Hepatotoxicity [Unknown]
  - Neurotoxicity [Unknown]
  - Seizure [Unknown]
  - Therapeutic product effect incomplete [Unknown]
